FAERS Safety Report 4357496-3 (Version None)
Quarter: 2004Q2

REPORT INFORMATION
  Report Type: 
  Country: None (occurrence: None)
  Receive Date: 20040512
  Receipt Date: 20040512
  Transmission Date: 20050107
  Serious: Yes (Hospitalization)
  Sender: FDA-Public Use
  Company Number: None

PATIENT
  Age: 50 Year
  Sex: Female
  Weight: 65.318 kg

DRUGS (12)
  1. CARBOPLATIN [Suspect]
     Indication: BREAST CANCER
     Dosage: 176 MG Q 2 WEEKS INTRAVENOUS
     Route: 042
     Dates: start: 20031020, end: 20040510
  2. CARBOPLATIN [Suspect]
     Indication: METASTASES TO LIVER
     Dosage: 176 MG Q 2 WEEKS INTRAVENOUS
     Route: 042
     Dates: start: 20031020, end: 20040510
  3. CARBOPLATIN [Suspect]
     Indication: METASTASES TO LUNG
     Dosage: 176 MG Q 2 WEEKS INTRAVENOUS
     Route: 042
     Dates: start: 20031020, end: 20040510
  4. LEVAQUIN [Concomitant]
  5. IMIPRAMINE [Concomitant]
  6. PRILOSEC [Concomitant]
  7. WARFARIN SODIUM [Concomitant]
  8. NEURONTIN [Concomitant]
  9. EMEND [Concomitant]
  10. DEXAMETHASONE [Concomitant]
  11. NEUPOGEN [Concomitant]
  12. ARANESP [Concomitant]

REACTIONS (7)
  - FOAMING AT MOUTH [None]
  - HYPERTENSION [None]
  - HYPERTONIA [None]
  - HYPOTENSION [None]
  - MENTAL STATUS CHANGES [None]
  - SYNCOPE [None]
  - VOMITING [None]
